FAERS Safety Report 5659186-3 (Version None)
Quarter: 2008Q1

REPORT INFORMATION
  Report Type: 
  Country: None (occurrence: None)
  Receive Date: 20080311
  Receipt Date: 20070530
  Transmission Date: 20080703
  Serious: No
  Sender: FDA-Public Use
  Company Number: US-BAYER-200711747BCC

PATIENT
  Age: 79 Year
  Sex: Male
  Weight: 68 kg

DRUGS (9)
  1. ALEVE [Suspect]
     Indication: ARTHRALGIA
     Dosage: UNIT DOSE: 220 MG
     Route: 048
     Dates: start: 20070201
  2. ALEVE [Suspect]
  3. WALGREEN'S ASPIRIN [Concomitant]
  4. LASIX [Concomitant]
  5. SOTALOL [Concomitant]
  6. DIGOXIN [Concomitant]
  7. UROXATRAL [Concomitant]
  8. NAMENDA [Concomitant]
  9. FUROSEMIDE [Concomitant]

REACTIONS (2)
  - FATIGUE [None]
  - SOMNOLENCE [None]
